FAERS Safety Report 5827197-0 (Version None)
Quarter: 2008Q3

REPORT INFORMATION
  Report Type: 
  Country: None (occurrence: None)
  Receive Date: 20080730
  Receipt Date: 20080725
  Transmission Date: 20090109
  Serious: Yes (Death)
  Sender: FDA-Public Use
  Company Number: JP-AVENTIS-200812134JP

PATIENT
  Age: 59 Year
  Sex: Male
  Weight: 65 kg

DRUGS (9)
  1. TAXOTERE [Suspect]
     Indication: LUNG ADENOCARCINOMA
     Route: 041
     Dates: start: 20071109, end: 20071109
  2. WARFARIN SODIUM [Concomitant]
     Indication: DEEP VEIN THROMBOSIS
     Route: 048
     Dates: start: 20071009, end: 20071130
  3. VOLTAREN-XR [Concomitant]
     Route: 048
     Dates: start: 20071019, end: 20071209
  4. OMEPRAL [Concomitant]
     Indication: GASTRIC ULCER
     Route: 048
     Dates: start: 20071019, end: 20071207
  5. CODEINE PHOSPHATE [Concomitant]
     Indication: COUGH
     Route: 048
     Dates: start: 20071102, end: 20071128
  6. SPIRIVA [Concomitant]
     Route: 055
     Dates: start: 20050915, end: 20071128
  7. RHYTHMY [Concomitant]
     Indication: INSOMNIA
     Route: 048
     Dates: start: 20071024, end: 20071207
  8. ZOFRAN [Concomitant]
     Indication: PREMEDICATION
  9. DEXART [Concomitant]
     Indication: PREMEDICATION

REACTIONS (1)
  - INTERSTITIAL LUNG DISEASE [None]
